FAERS Safety Report 17091232 (Version 1)
Quarter: 2019Q4

REPORT INFORMATION
  Report Type: Spontaneous
  Country: US (occurrence: US)
  Receive Date: 20191127
  Receipt Date: 20191127
  Transmission Date: 20200122
  Serious: No
  Sender: FDA-Public Use
  Company Number: None

PATIENT
  Age: 71 Year

DRUGS (1)
  1. BEVACIZUMAB. [Suspect]
     Active Substance: BEVACIZUMAB
     Indication: UVEITIS
     Dosage: ?          OTHER FREQUENCY:ONCE;OTHER ROUTE:INTRAVITREAL?
     Dates: start: 20191122, end: 20191122

REACTIONS (3)
  - Endophthalmitis [None]
  - Ocular discomfort [None]
  - Eye inflammation [None]

NARRATIVE: CASE EVENT DATE: 20191122
